FAERS Safety Report 15312277 (Version 2)
Quarter: 2018Q3

REPORT INFORMATION
  Report Type: Spontaneous
  Country: TH (occurrence: TH)
  Receive Date: 20180823
  Receipt Date: 20180828
  Transmission Date: 20181010
  Serious: Yes (Hospitalization)
  Sender: FDA-Public Use
  Company Number: TH-OTSUKA-2018_028878

PATIENT
  Age: 38 Year
  Sex: Male

DRUGS (2)
  1. BUSULFEX [Suspect]
     Active Substance: BUSULFAN
     Indication: ALLOGENIC BONE MARROW TRANSPLANTATION THERAPY
  2. BUSULFEX [Suspect]
     Active Substance: BUSULFAN
     Indication: ACUTE MYELOID LEUKAEMIA
     Dosage: 55 MG, UNK (NSS 100 ML EVERY 6 HOURS FOR 4 DAYS)
     Route: 042
     Dates: start: 20160112, end: 20160115

REACTIONS (5)
  - Venoocclusive disease [Recovered/Resolved]
  - Bronchopulmonary aspergillosis [Recovered/Resolved]
  - Febrile neutropenia [Recovered/Resolved]
  - Product use in unapproved indication [Unknown]
  - Thrombocytopenia [Recovered/Resolved]
